FAERS Safety Report 14817722 (Version 1)
Quarter: 2018Q2

REPORT INFORMATION
  Report Type: Spontaneous
  Country: US (occurrence: US)
  Receive Date: 20180427
  Receipt Date: 20180427
  Transmission Date: 20180711
  Serious: Yes (Hospitalization, Other)
  Sender: FDA-Public Use
  Company Number: US-ELI_LILLY_AND_COMPANY-US201804013181

PATIENT
  Age: 18 Year
  Sex: Female

DRUGS (5)
  1. PREDNISONE. [Concomitant]
     Active Substance: PREDNISONE
     Indication: PROPHYLAXIS
     Dosage: UNK, UNKNOWN
     Route: 048
  2. INTERFERON [Concomitant]
     Active Substance: INTERFERON
     Indication: OVARIAN GRANULOSA CELL TUMOUR
     Dosage: UNK, UNKNOWN
  3. PEMETREXED. [Suspect]
     Active Substance: PEMETREXED
     Indication: OVARIAN GRANULOSA CELL TUMOUR
     Dosage: UNK UNK, OTHER
     Route: 065
  4. THALIDOMIDE [Concomitant]
     Active Substance: THALIDOMIDE
     Indication: OVARIAN GRANULOSA CELL TUMOUR
     Dosage: UNK, UNKNOWN
  5. BEVACIZUMAB. [Concomitant]
     Active Substance: BEVACIZUMAB
     Indication: OVARIAN GRANULOSA CELL TUMOUR
     Dosage: UNK, UNKNOWN

REACTIONS (3)
  - Haemorrhage [Unknown]
  - Tubulointerstitial nephritis [Recovering/Resolving]
  - Off label use [Unknown]
